FAERS Safety Report 9497608 (Version 1)
Quarter: 2013Q3

REPORT INFORMATION
  Report Type: Spontaneous
  Country: US (occurrence: US)
  Receive Date: 20130904
  Receipt Date: 20130904
  Transmission Date: 20140515
  Serious: No
  Sender: FDA-Public Use
  Company Number: US-AMGEN-USASP2013057041

PATIENT
  Age: 53 Year
  Sex: Female

DRUGS (2)
  1. ENBREL [Suspect]
     Indication: PSORIATIC ARTHROPATHY
     Dosage: UNK
     Route: 065
     Dates: start: 20130401
  2. ENBREL [Suspect]
     Indication: PSORIASIS

REACTIONS (5)
  - Excoriation [Recovered/Resolved]
  - Skin haemorrhage [Recovered/Resolved]
  - Anger [Unknown]
  - Unevaluable event [Recovered/Resolved]
  - Psoriasis [Unknown]
